FAERS Safety Report 4707829-0 (Version None)
Quarter: 2005Q2

REPORT INFORMATION
  Report Type: 
  Country: None (occurrence: None)
  Receive Date: 20050629
  Receipt Date: 20050308
  Transmission Date: 20051028
  Serious: No
  Sender: FDA-Public Use
  Company Number: 05P-163-0293073-00

PATIENT
  Age: 58 Year
  Sex: Female
  Weight: 90.7194 kg

DRUGS (12)
  1. HUMIRA [Suspect]
     Indication: RHEUMATOID ARTHRITIS
     Dosage: 40 MG, 1 IN 1 WK, SUBCUTANEOUS
     Route: 058
     Dates: start: 20050217
  2. PREDNISONE [Concomitant]
  3. FUROSEMIDE [Concomitant]
  4. K-DUR 10 [Concomitant]
  5. CARVEDILOL [Concomitant]
  6. OMEPRAZOLE [Concomitant]
  7. LEVOTHYROXINE SODIUM [Concomitant]
  8. FENOFIBRATE [Concomitant]
  9. CLONAZEPAM [Concomitant]
  10. LORATADINE [Concomitant]
  11. DARVOCET [Concomitant]
  12. PARACETAMOL [Concomitant]

REACTIONS (3)
  - ARTHRITIS [None]
  - INJECTION SITE PAIN [None]
  - INJECTION SITE RASH [None]
